FAERS Safety Report 7552946-3 (Version None)
Quarter: 2011Q2

REPORT INFORMATION
  Report Type: 
  Country: None (occurrence: None)
  Receive Date: 20110616
  Receipt Date: 20110604
  Transmission Date: 20111010
  Serious: Yes (Hospitalization)
  Sender: FDA-Public Use
  Company Number: DE-PFIZER INC-2011105391

PATIENT
  Age: 57 Year
  Sex: Male

DRUGS (8)
  1. TIMONIL [Concomitant]
     Dosage: UNK
     Dates: start: 20100701
  2. TORISEL [Suspect]
     Dosage: 20 MG, WEEKLY
     Route: 042
     Dates: end: 20110524
  3. MST [Concomitant]
     Dosage: UNK
     Dates: start: 20100801
  4. TORISEL [Suspect]
     Indication: HEAD AND NECK CANCER
     Dosage: 25 MG, WEEKLY
     Route: 042
     Dates: start: 20110419, end: 20110426
  5. ORAMORPH SR [Concomitant]
  6. PANTOPRAZOLE [Concomitant]
     Dosage: UNK
     Dates: start: 20100901
  7. MOVIPREP [Concomitant]
     Dosage: UNK
     Dates: start: 20100701
  8. NOVALGIN [Concomitant]
     Dosage: UNK
     Dates: start: 20100801

REACTIONS (3)
  - INFECTION [None]
  - MUSCULOSKELETAL PAIN [None]
  - GENERAL PHYSICAL HEALTH DETERIORATION [None]
